FAERS Safety Report 23504116 (Version 2)
Quarter: 2024Q1

REPORT INFORMATION
  Report Type: Spontaneous
  Country: JP (occurrence: JP)
  Receive Date: 20240209
  Receipt Date: 20240222
  Transmission Date: 20240410
  Serious: Yes (Hospitalization, Other)
  Sender: FDA-Public Use
  Company Number: JP-GLAXOSMITHKLINE-JP2024JPN016320

PATIENT

DRUGS (6)
  1. LAMICTAL [Suspect]
     Active Substance: LAMOTRIGINE
     Indication: Partial seizures
     Dosage: 175 MG, QD
  2. LAMICTAL [Suspect]
     Active Substance: LAMOTRIGINE
     Dosage: 150 MG, QD
  3. LEVETIRACETAM [Concomitant]
     Active Substance: LEVETIRACETAM
     Dosage: 1000 MG, QD
  4. LEVETIRACETAM [Concomitant]
     Active Substance: LEVETIRACETAM
     Dosage: 2000 MG, QD
  5. LEVETIRACETAM [Concomitant]
     Active Substance: LEVETIRACETAM
     Dosage: 1750 MG, QD
  6. LEVETIRACETAM [Concomitant]
     Active Substance: LEVETIRACETAM
     Dosage: 1250 MG, QD

REACTIONS (12)
  - Generalised tonic-clonic seizure [Unknown]
  - Hallucination [Unknown]
  - Pancytopenia [Unknown]
  - Mental impairment [Unknown]
  - Depressed level of consciousness [Unknown]
  - Dysphagia [Unknown]
  - Dyspnoea [Unknown]
  - Seizure [Unknown]
  - Condition aggravated [Unknown]
  - Blood pressure decreased [Unknown]
  - Hepatic function abnormal [Unknown]
  - Anaemia [Unknown]
